FAERS Safety Report 8172025-4 (Version None)
Quarter: 2012Q1

REPORT INFORMATION
  Report Type: 
  Country: None (occurrence: None)
  Receive Date: 20120228
  Receipt Date: 20120220
  Transmission Date: 20120608
  Serious: Yes (Other)
  Sender: FDA-Public Use
  Company Number: PHHY2012MG001310

PATIENT
  Age: 20 Year
  Weight: 56 kg

DRUGS (3)
  1. RIFAMPICIN [Suspect]
     Indication: TUBERCULOSIS
     Dosage: 560 MG, QD
  2. ETHAMBUTOL HYDROCHLORIDE [Suspect]
     Indication: TUBERCULOSIS
     Dosage: 840 MG, QD
  3. ISONIAZID [Suspect]
     Indication: TUBERCULOSIS
     Dosage: 280 MG, QD

REACTIONS (5)
  - LYMPHADENOPATHY [None]
  - GRANULOMA [None]
  - NECROSIS [None]
  - HYPERTROPHY [None]
  - PYREXIA [None]
